FAERS Safety Report 23409503 (Version 1)
Quarter: 2024Q1

REPORT INFORMATION
  Report Type: Spontaneous
  Country: US (occurrence: None)
  Receive Date: 20240116
  Receipt Date: 20240116
  Transmission Date: 20240410
  Serious: No
  Sender: FDA-Public Use
  Company Number: None

PATIENT
  Age: 70 Year
  Sex: Male

DRUGS (1)
  1. ELIGARD [Suspect]
     Active Substance: LEUPROLIDE ACETATE
     Indication: Prostate cancer
     Dosage: INJECT 22.5MG SUBCUTANEOUSLY EVERY 3 MONTHS AS DIRECTED.??THERAPY STOPPED: ON HOLD
     Route: 058
     Dates: start: 202309

REACTIONS (1)
  - Pneumonia [None]
